FAERS Safety Report 25605453 (Version 1)
Quarter: 2025Q3

REPORT INFORMATION
  Report Type: Spontaneous
  Country: US (occurrence: US)
  Receive Date: 20250725
  Receipt Date: 20250725
  Transmission Date: 20251021
  Serious: No
  Sender: ABBVIE
  Company Number: US-ABBVIE-6382313

PATIENT
  Age: 17 Year
  Sex: Female
  Weight: 72.574 kg

DRUGS (6)
  1. SKYRIZI [Suspect]
     Active Substance: RISANKIZUMAB-RZAA
     Indication: Colitis ulcerative
     Route: 058
     Dates: start: 202411
  2. METHOTREXATE [Concomitant]
     Active Substance: METHOTREXATE
     Indication: Psoriasis
  3. Zoryte [Concomitant]
     Indication: Psoriasis
  4. FOLIC ACID [Concomitant]
     Active Substance: FOLIC ACID
     Indication: Psoriasis
  5. Ketoconazole nr [Concomitant]
     Indication: Psoriasis
  6. VITAMIN D [Concomitant]
     Active Substance: VITAMIN D NOS
     Indication: Vitamin supplementation

REACTIONS (6)
  - Injection site induration [Recovering/Resolving]
  - Injection site discolouration [Recovered/Resolved]
  - Device issue [Not Recovered/Not Resolved]
  - Injection site pain [Recovering/Resolving]
  - Injection site papule [Recovered/Resolved]
  - Incorrect dose administered [Unknown]

NARRATIVE: CASE EVENT DATE: 20250720
